FAERS Safety Report 5547275-3 (Version None)
Quarter: 2007Q4

REPORT INFORMATION
  Report Type: 
  Country: None (occurrence: None)
  Receive Date: 20071206
  Receipt Date: 20071130
  Transmission Date: 20080405
  Serious: Yes (Hospitalization)
  Sender: FDA-Public Use
  Company Number: 2007-05427

PATIENT
  Age: 15 Year
  Sex: Female
  Weight: 48 kg

DRUGS (2)
  1. FIORICET [Suspect]
     Indication: OVERDOSE
     Dosage: 96 TABLETS (48 G), SINGLE, ORAL
     Route: 048
     Dates: start: 20070101, end: 20070101
  2. ACETYLSALICYSTEINE (ACETYLCYSTEINE) [Concomitant]

REACTIONS (2)
  - HYPOKALAEMIA [None]
  - INTENTIONAL OVERDOSE [None]
